FAERS Safety Report 6146261-2 (Version None)
Quarter: 2009Q2

REPORT INFORMATION
  Report Type: 
  Country: None (occurrence: None)
  Receive Date: 20090407
  Receipt Date: 20090327
  Transmission Date: 20091009
  Serious: Yes (Other)
  Sender: FDA-Public Use
  Company Number: GB-JNJFOC-20090202740

PATIENT
  Age: 45 Year
  Sex: Female

DRUGS (5)
  1. REMICADE [Suspect]
     Route: 042
  2. REMICADE [Suspect]
     Indication: RHEUMATOID ARTHRITIS
     Dosage: ON FOR 3 YEARS (MAINTENANCE DOSE)
     Route: 042
  3. METHOTREXATE [Concomitant]
  4. THALIDOMIDE [Concomitant]
  5. LEFLUNOMIDE [Concomitant]

REACTIONS (2)
  - ALOPECIA [None]
  - SYSTEMIC LUPUS ERYTHEMATOSUS RASH [None]
